FAERS Safety Report 8871997 (Version 2)
Quarter: 2012Q4

REPORT INFORMATION
  Report Type: 
  Country: TN (occurrence: TN)
  Receive Date: 20121029
  Receipt Date: 20121108
  Transmission Date: 20130627
  Serious: Yes (Hospitalization, Other)
  Sender: FDA-Public Use
  Company Number: TN-RANBAXY-2012RR-61505

PATIENT
  Age: 16 Year
  Sex: Female

DRUGS (2)
  1. CIPROFLOXACIN [Suspect]
     Indication: KIDNEY INFECTION
     Dosage: UNK
     Route: 048
  2. NIFLUMIC ACID [Suspect]
     Indication: KIDNEY INFECTION
     Dosage: UNK
     Route: 054

REACTIONS (1)
  - Renal papillary necrosis [Unknown]
